FAERS Safety Report 6178083-0 (Version None)
Quarter: 2009Q2

REPORT INFORMATION
  Report Type: 
  Country: None (occurrence: None)
  Receive Date: 20090504
  Receipt Date: 20090204
  Transmission Date: 20091009
  Serious: No
  Sender: FDA-Public Use
  Company Number: US-ALEXION-A200900099

PATIENT
  Sex: Female

DRUGS (12)
  1. SOLIRIS [Suspect]
     Dosage: UNK
  2. RECLAST [Concomitant]
     Dosage: UNK
     Dates: start: 20090108
  3. FOSAMAX [Concomitant]
     Dosage: UNK
  4. OSCAL                              /00108001/ [Concomitant]
     Dosage: UNK
  5. FOLIC ACID [Concomitant]
     Dosage: UNK
  6. ASCORBIC ACID W/CALCIUM            /01259201/ [Concomitant]
     Dosage: UNK
  7. MINERALS NOS [Concomitant]
     Dosage: UNK
  8. RETINOL [Concomitant]
     Dosage: UNK
  9. TOCOPHERYL ACETATE [Concomitant]
     Dosage: UNK
  10. SENNA-MINT WAF [Concomitant]
     Dosage: UNK
  11. VITAMINS                           /90003601/ [Concomitant]
     Dosage: UNK
  12. ESTRATEST H.S. [Concomitant]
     Dosage: UNK

REACTIONS (2)
  - HAEMATOCRIT DECREASED [None]
  - HAEMOGLOBIN DECREASED [None]
